FAERS Safety Report 6238605-8 (Version None)
Quarter: 2009Q2

REPORT INFORMATION
  Report Type: 
  Country: None (occurrence: None)
  Receive Date: 20090622
  Receipt Date: 20090610
  Transmission Date: 20091009
  Serious: Yes (Other)
  Sender: FDA-Public Use
  Company Number: ES-PFIZER INC-2009221322

PATIENT
  Sex: Male

DRUGS (1)
  1. MARAVIROC [Suspect]
     Dosage: UNK
     Dates: start: 20050601

REACTIONS (1)
  - HODGKIN'S DISEASE [None]
